FAERS Safety Report 22850806 (Version 4)
Quarter: 2023Q4

REPORT INFORMATION
  Report Type: Spontaneous
  Country: US (occurrence: US)
  Receive Date: 20230822
  Receipt Date: 20231121
  Transmission Date: 20240110
  Serious: No
  Sender: FDA-Public Use
  Company Number: US-PFIZER INC-202300279576

PATIENT
  Age: 77 Year
  Sex: Female
  Weight: 86.168 kg

DRUGS (1)
  1. DESVENLAFAXINE SUCCINATE [Suspect]
     Active Substance: DESVENLAFAXINE SUCCINATE
     Indication: Fibromyalgia
     Dosage: 100 MG, 1X/DAY
     Dates: start: 2008

REACTIONS (2)
  - Therapeutic product effect incomplete [Recovering/Resolving]
  - Off label use [Unknown]

NARRATIVE: CASE EVENT DATE: 20080101
